FAERS Safety Report 7638410-1 (Version None)
Quarter: 2011Q3

REPORT INFORMATION
  Report Type: 
  Country: None (occurrence: None)
  Receive Date: 20110720
  Receipt Date: 20110711
  Transmission Date: 20111222
  Serious: Yes (Other)
  Sender: FDA-Public Use
  Company Number: 2011SP032066

PATIENT
  Age: 40 Year
  Sex: Female
  Weight: 73 kg

DRUGS (1)
  1. CERAZETTE (DESOGESTREL /00754001/) [Suspect]
     Indication: CONTRACEPTION
     Dosage: QD, PO
     Route: 048
     Dates: start: 20060101

REACTIONS (6)
  - VAGINAL CYST [None]
  - HYPOMENORRHOEA [None]
  - AMENORRHOEA [None]
  - MENSTRUATION IRREGULAR [None]
  - ABNORMAL WITHDRAWAL BLEEDING [None]
  - DRUG DOSE OMISSION [None]
